FAERS Safety Report 10192418 (Version 1)
Quarter: 2014Q2

REPORT INFORMATION
  Report Type: Report from Study
  Country: AR (occurrence: AR)
  Receive Date: 20140523
  Receipt Date: 20140523
  Transmission Date: 20141212
  Serious: Yes (Death)
  Sender: FDA-Public Use
  Company Number: AR-BRISTOL-MYERS SQUIBB COMPANY-20756029

PATIENT
  Age: 56 Year
  Sex: Male

DRUGS (1)
  1. NULOJIX [Suspect]
     Dates: start: 20130418

REACTIONS (1)
  - Infarction [Fatal]
